FAERS Safety Report 20648031 (Version 5)
Quarter: 2022Q3

REPORT INFORMATION
  Report Type: Spontaneous
  Country: BR (occurrence: BR)
  Receive Date: 20220329
  Receipt Date: 20220901
  Transmission Date: 20221027
  Serious: Yes (Other)
  Sender: FDA-Public Use
  Company Number: BR-GLAXOSMITHKLINE-BR2022AMR052482

PATIENT

DRUGS (2)
  1. BENLYSTA [Suspect]
     Active Substance: BELIMUMAB
     Indication: Systemic lupus erythematosus
     Dosage: 120 MG 7 TO 8 BOXES OF 120 MG,DEPENDING ON WEIGHT ON THE DAY
     Route: 042
     Dates: start: 20211007
  2. BENLYSTA [Suspect]
     Active Substance: BELIMUMAB
     Dosage: 400 MG
     Route: 042
     Dates: start: 202109

REACTIONS (12)
  - Systemic lupus erythematosus [Unknown]
  - Swelling [Unknown]
  - COVID-19 [Recovered/Resolved]
  - Cough [Recovered/Resolved]
  - Memory impairment [Unknown]
  - Influenza [Unknown]
  - Depression [Not Recovered/Not Resolved]
  - Discouragement [Not Recovered/Not Resolved]
  - Patient isolation [Not Recovered/Not Resolved]
  - Anxiety [Not Recovered/Not Resolved]
  - Product dose omission issue [Unknown]
  - Inappropriate schedule of product administration [Unknown]

NARRATIVE: CASE EVENT DATE: 20220101
